FAERS Safety Report 23622175 (Version 2)
Quarter: 2024Q1

REPORT INFORMATION
  Report Type: Spontaneous
  Country: UY (occurrence: UY)
  Receive Date: 20240312
  Receipt Date: 20240329
  Transmission Date: 20240409
  Serious: No
  Sender: FDA-Public Use
  Company Number: UY-PFIZER INC-PV202400022097

PATIENT
  Age: 9 Year
  Sex: Male

DRUGS (1)
  1. GENOTROPIN [Suspect]
     Active Substance: SOMATROPIN
     Indication: Short stature
     Dosage: 0.6 TO 1 MG, 6 TIMES PER WEEK
     Dates: end: 20240214

REACTIONS (2)
  - Drug dose omission by device [Unknown]
  - Device breakage [Unknown]

NARRATIVE: CASE EVENT DATE: 20240214
